FAERS Safety Report 6581000-2 (Version None)
Quarter: 2010Q1

REPORT INFORMATION
  Report Type: 
  Country: None (occurrence: None)
  Receive Date: 20100215
  Receipt Date: 20100204
  Transmission Date: 20100710
  Serious: Yes (Hospitalization)
  Sender: FDA-Public Use
  Company Number: JP-ASTRAZENECA-2010SE05289

PATIENT
  Age: 71 Year
  Sex: Male

DRUGS (2)
  1. OMEPRAL [Suspect]
     Route: 048
     Dates: start: 20100129
  2. OMEPRAL INJECTION [Concomitant]
     Dates: end: 20100128

REACTIONS (1)
  - GRANULOCYTOPENIA [None]
